FAERS Safety Report 9435528 (Version 3)
Quarter: 2013Q4

REPORT INFORMATION
  Report Type: Report from Study
  Country: JP (occurrence: JP)
  Receive Date: 20130801
  Receipt Date: 20131025
  Transmission Date: 20140711
  Serious: Yes (Hospitalization, Other)
  Sender: FDA-Public Use
  Company Number: JP-JNJFOC-20130716614

PATIENT
  Age: 67 Year
  Sex: Female

DRUGS (9)
  1. SIMPONI [Suspect]
     Indication: RHEUMATOID ARTHRITIS
     Route: 058
     Dates: start: 20120828, end: 20120828
  2. SIMPONI [Suspect]
     Indication: RHEUMATOID ARTHRITIS
     Route: 058
     Dates: start: 20120921, end: 20120921
  3. REMICADE [Suspect]
     Indication: RHEUMATOID ARTHRITIS
     Route: 042
     Dates: start: 20100622, end: 20120703
  4. METHOTREXATE [Suspect]
     Indication: RHEUMATOID ARTHRITIS
     Route: 065
     Dates: start: 20100622, end: 20120828
  5. PREDNISOLONE [Concomitant]
     Indication: RHEUMATOID ARTHRITIS
     Route: 048
  6. BONALON [Concomitant]
     Indication: OSTEOPOROSIS
     Route: 048
  7. TAKEPRON [Concomitant]
     Indication: PROPHYLAXIS
     Route: 048
  8. MUCOSTA [Concomitant]
     Indication: PROPHYLAXIS
     Route: 048
  9. FOLIAMIN [Concomitant]
     Indication: PROPHYLAXIS
     Route: 048

REACTIONS (10)
  - Renal failure acute [Not Recovered/Not Resolved]
  - Circulatory collapse [Recovered/Resolved]
  - Septic shock [Recovered/Resolved]
  - Pneumonia [Recovering/Resolving]
  - Dehydration [Recovered/Resolved]
  - Depressed level of consciousness [Recovered/Resolved]
  - Disseminated intravascular coagulation [Unknown]
  - Blood creatine phosphokinase increased [Recovered/Resolved]
  - Acute respiratory failure [Recovered/Resolved]
  - Arthralgia [Not Recovered/Not Resolved]
